FAERS Safety Report 10555345 (Version 1)
Quarter: 2014Q4

REPORT INFORMATION
  Report Type: Spontaneous
  Country: AR (occurrence: AR)
  Receive Date: 20141030
  Receipt Date: 20141030
  Transmission Date: 20150529
  Serious: Yes (Other)
  Sender: FDA-Public Use
  Company Number: CHPA2014AR014443

PATIENT
  Age: 68 Year
  Sex: Male

DRUGS (1)
  1. OTRIVINA [Suspect]
     Active Substance: XYLOMETAZOLINE
     Indication: PRODUCT USED FOR UNKNOWN INDICATION
     Dosage: UNK, 2-3 TIMES PER DAY
     Route: 045
     Dates: start: 2012, end: 201410

REACTIONS (5)
  - Weight decreased [Recovering/Resolving]
  - Depressed mood [Recovering/Resolving]
  - Incorrect drug administration duration [Unknown]
  - Dyspnoea [Recovering/Resolving]
  - Malaise [Recovering/Resolving]

NARRATIVE: CASE EVENT DATE: 2013
